FAERS Safety Report 8187584-5 (Version None)
Quarter: 2012Q1

REPORT INFORMATION
  Report Type: 
  Country: None (occurrence: None)
  Receive Date: 20120306
  Receipt Date: 20120222
  Transmission Date: 20120608
  Serious: Yes (Other)
  Sender: FDA-Public Use
  Company Number: US-ELI_LILLY_AND_COMPANY-US201201008975

PATIENT
  Sex: Female

DRUGS (1)
  1. CYMBALTA [Suspect]
     Dosage: 30 MG, UNK
     Dates: start: 20111019, end: 20111116

REACTIONS (6)
  - HEPATITIS [None]
  - HEPATIC STEATOSIS [None]
  - NEPHROLITHIASIS [None]
  - RENAL MASS [None]
  - BLOOD CREATININE INCREASED [None]
  - ABDOMINAL HERNIA [None]
